FAERS Safety Report 7233301-2 (Version None)
Quarter: 2011Q1

REPORT INFORMATION
  Report Type: 
  Country: None (occurrence: None)
  Receive Date: 20110119
  Receipt Date: 20110107
  Transmission Date: 20110831
  Serious: Yes (Other)
  Sender: FDA-Public Use
  Company Number: US-ROCHE-674707

PATIENT
  Sex: Female
  Weight: 69.9 kg

DRUGS (10)
  1. ALEVE [Concomitant]
  2. DIFLUCAN [Concomitant]
  3. ACCUTANE [Suspect]
     Dosage: EVERY OTHER DAY
     Route: 065
     Dates: start: 20021029, end: 20030201
  4. AMNESTEEM [Suspect]
     Route: 065
     Dates: start: 20031115, end: 20031215
  5. AMPICILLIN TRIHYDRATE [Concomitant]
  6. BUTALBITAL [Concomitant]
  7. APAP/PROPOXYPHENE NAPSYLATE [Concomitant]
  8. ADVIL [Concomitant]
  9. NAPROSYN [Concomitant]
  10. IBUPROFEN [Concomitant]

REACTIONS (11)
  - SYNCOPE [None]
  - OVARIAN CYST [None]
  - CONJUNCTIVAL HAEMORRHAGE [None]
  - EYELID BLEEDING [None]
  - INFLAMMATORY BOWEL DISEASE [None]
  - DEPRESSION [None]
  - COLITIS ULCERATIVE [None]
  - POST CONCUSSION SYNDROME [None]
  - ORAL HERPES [None]
  - CROHN'S DISEASE [None]
  - ECZEMA [None]
